FAERS Safety Report 10703211 (Version 1)
Quarter: 2015Q1

REPORT INFORMATION
  Report Type: Spontaneous
  Country: US (occurrence: US)
  Receive Date: 20150112
  Receipt Date: 20150112
  Transmission Date: 20150721
  Serious: No
  Sender: FDA-Public Use
  Company Number: US-AMGEN INC.-USASP2015000097

PATIENT
  Age: 51 Year
  Sex: Female

DRUGS (3)
  1. REMICADE [Concomitant]
     Active Substance: INFLIXIMAB
     Dosage: UNK
  2. ENBREL [Suspect]
     Active Substance: ETANERCEPT
     Indication: RHEUMATOID ARTHRITIS
     Dosage: 50 MG, 2 TIMES/WK
     Route: 065
     Dates: start: 20010101
  3. ENBREL [Suspect]
     Active Substance: ETANERCEPT
     Indication: PSORIASIS

REACTIONS (4)
  - Skin haemorrhage [Recovered/Resolved]
  - Injury associated with device [Recovered/Resolved]
  - Incorrect dose administered [Recovered/Resolved]
  - Pain [Recovered/Resolved]

NARRATIVE: CASE EVENT DATE: 20141231
